FAERS Safety Report 9498960 (Version 3)
Quarter: 2013Q4

REPORT INFORMATION
  Report Type: Spontaneous
  Country: SE (occurrence: SE)
  Receive Date: 20130904
  Receipt Date: 20131017
  Transmission Date: 20140711
  Serious: Yes (Death, Hospitalization)
  Sender: FDA-Public Use
  Company Number: SE-ELI_LILLY_AND_COMPANY-SE201308009464

PATIENT
  Age: 69 Year
  Sex: Male

DRUGS (8)
  1. ALIMTA [Suspect]
     Indication: NON-SMALL CELL LUNG CANCER
     Dosage: UNK
     Dates: start: 20130718
  2. CARBOPLATIN [Suspect]
     Dosage: UNK
     Dates: start: 20130718
  3. OMEPRAZOLE [Concomitant]
  4. FOLACIN [Concomitant]
  5. PRONAXEN [Concomitant]
  6. ACETYLCYSTEIN [Concomitant]
  7. ALLOPURINOL [Concomitant]
  8. IMOVANE [Concomitant]

REACTIONS (12)
  - Decreased appetite [Fatal]
  - Thrombocytopenia [Fatal]
  - Gastrointestinal haemorrhage [Fatal]
  - Dizziness [Fatal]
  - Dysphagia [Fatal]
  - Malaise [Fatal]
  - Headache [Fatal]
  - Haemoglobin decreased [Not Recovered/Not Resolved]
  - White blood cell count decreased [Unknown]
  - Red blood cell count decreased [Unknown]
  - Abdominal pain upper [Unknown]
  - Off label use [Unknown]
